FAERS Safety Report 8598205-1 (Version None)
Quarter: 2012Q3

REPORT INFORMATION
  Report Type: 
  Country: None (occurrence: None)
  Receive Date: 20120802
  Receipt Date: 20120723
  Transmission Date: 20120928
  Serious: Yes (Other)
  Sender: FDA-Public Use
  Company Number: 2012S1000302

PATIENT
  Age: 63 Year
  Sex: Male

DRUGS (3)
  1. LIVALO [Suspect]
     Indication: BLOOD CHOLESTEROL INCREASED
     Dosage: 2 MG; 1X; PO
     Route: 048
     Dates: start: 20111208, end: 20120220
  2. BISOPROLOL W/HYDROCHLOROTHIAZIDE / 01166101/ [Concomitant]
  3. IBUPROFEN [Concomitant]

REACTIONS (3)
  - ALANINE AMINOTRANSFERASE INCREASED [None]
  - JOINT STIFFNESS [None]
  - MUSCULAR WEAKNESS [None]
